FAERS Safety Report 8103250-6 (Version None)
Quarter: 2012Q1

REPORT INFORMATION
  Report Type: 
  Country: None (occurrence: None)
  Receive Date: 20120127
  Receipt Date: 20120112
  Transmission Date: 20120608
  Serious: Yes (Death)
  Sender: FDA-Public Use
  Company Number: 2012-017

PATIENT
  Age: 56 Year
  Sex: Female

DRUGS (19)
  1. FAZACLO ODT [Suspect]
     Indication: PSYCHOTIC DISORDER
     Dosage: 450 MG, QD, ORAL
     Route: 048
     Dates: start: 20090708, end: 20111113
  2. LEVOTHYROXINE (LEOVTHYROXINE) [Concomitant]
  3. MIRALAX [Concomitant]
  4. CELEXA [Concomitant]
  5. ABILIFY [Concomitant]
  6. PANTOPRAZOLE [Concomitant]
  7. LACTULOSE [Concomitant]
  8. CHOLECALCIFEROL (COLECALCIFEROL) [Concomitant]
  9. COLACE (DOCUSATE SODIUM) [Concomitant]
  10. MEGACE [Concomitant]
  11. WELLBUTRIN XL [Concomitant]
  12. FOLIC ACID [Concomitant]
  13. MULTIVITAMIN (ASCORBIC ACID, CALCIUM PANTOTHENATE, ERGOCALCIFEROL, NIC [Concomitant]
  14. FISH OIL (FISH OIL) [Concomitant]
  15. NAMENDA [Concomitant]
  16. ASPIRIN [Concomitant]
  17. DEPAKOTE [Concomitant]
  18. ACETYLCYSTEINE [Concomitant]
  19. DETROL [Concomitant]

REACTIONS (1)
  - DEATH [None]
